FAERS Safety Report 8860511 (Version 2)
Quarter: 2012Q4

REPORT INFORMATION
  Report Type: Report from Study
  Country: US (occurrence: US)
  Receive Date: 20121025
  Receipt Date: 20121116
  Transmission Date: 20130627
  Serious: Yes (Hospitalization)
  Sender: FDA-Public Use
  Company Number: US-ABBOTT-12P-163-0996913-00

PATIENT
  Age: 47 Year
  Sex: Female

DRUGS (23)
  1. HUMIRA [Suspect]
     Indication: CROHN^S DISEASE
     Dates: start: 20120905
  2. FLAGYL [Suspect]
     Indication: URINARY TRACT INFECTION
  3. TRILEPTAL [Concomitant]
     Indication: EPILEPSY
  4. VIT D [Concomitant]
     Indication: PRODUCT USED FOR UNKNOWN INDICATION
  5. MAGNESIUM [Concomitant]
     Indication: PRODUCT USED FOR UNKNOWN INDICATION
     Dosage: 1 tab daily
  6. PREDNISONE [Concomitant]
     Indication: PRODUCT USED FOR UNKNOWN INDICATION
     Dosage: 10 mg, 4 tabs daily
  7. ASACOL [Concomitant]
     Indication: CROHN^S DISEASE
     Dosage: 4 caps daily
  8. CYANOCOBALAMIN B12 [Concomitant]
     Indication: PRODUCT USED FOR UNKNOWN INDICATION
  9. MERCAPTOPURINE [Concomitant]
     Indication: CROHN^S DISEASE
     Dosage: 50 mg daily
  10. ALPRAZOLAM [Concomitant]
     Indication: PRODUCT USED FOR UNKNOWN INDICATION
     Dosage: 5 mg, in the evening
  11. BUSPIRONE [Concomitant]
     Indication: PRODUCT USED FOR UNKNOWN INDICATION
  12. SODIUM BICARBONATE [Concomitant]
     Indication: PRODUCT USED FOR UNKNOWN INDICATION
     Dosage: 650 mg, 2 tabs twice daily
  13. OXYCONTIN [Concomitant]
     Indication: PAIN
     Dosage: 60 mg, 1 tab in am and 2 tabs in pm
  14. AMBIEN [Concomitant]
     Indication: PRODUCT USED FOR UNKNOWN INDICATION
     Dosage: 5 mg, in the evening as needed
  15. PROCHLORPERAZINE MALEATE [Concomitant]
     Indication: NAUSEA
     Dosage: 5 mg, every 6 hours as needed
  16. OMEPRAZOLE [Concomitant]
     Indication: PRODUCT USED FOR UNKNOWN INDICATION
     Dosage: 20 mg daily
  17. IMITREX [Concomitant]
     Indication: MIGRAINE
  18. FOSAMAX [Concomitant]
     Indication: PRODUCT USED FOR UNKNOWN INDICATION
  19. BENTYL [Concomitant]
     Indication: GASTRIC DISORDER
  20. FLEXERIL [Concomitant]
     Indication: PAIN
     Dosage: 10 mg, every 8 hours, as needed
  21. TRAZODONE [Concomitant]
     Indication: PRODUCT USED FOR UNKNOWN INDICATION
     Dosage: 100 mg, in the evening
  22. DILAUDID [Concomitant]
     Indication: PAIN
     Dosage: 4 mg, every 6 hours as needed
  23. CIPRO [Concomitant]
     Indication: URINARY TRACT INFECTION
     Dosage: Have been on antibiotic for months

REACTIONS (5)
  - Dehydration [Not Recovered/Not Resolved]
  - Asthenia [Unknown]
  - Fatigue [Unknown]
  - Mobility decreased [Unknown]
  - Inappropriate schedule of drug administration [Recovered/Resolved]
